FAERS Safety Report 18578067 (Version 1)
Quarter: 2020Q4

REPORT INFORMATION
  Report Type: Spontaneous
  Country: TR (occurrence: TR)
  Receive Date: 20201204
  Receipt Date: 20201204
  Transmission Date: 20210114
  Serious: Yes (Other)
  Sender: FDA-Public Use
  Company Number: TR-SUN PHARMACEUTICAL INDUSTRIES LTD-2020RR-269784

PATIENT
  Age: 62 Year
  Sex: Female

DRUGS (5)
  1. MYCOPHENOLATE [Suspect]
     Active Substance: MYCOPHENOLIC ACID
     Indication: DERMATITIS
     Dosage: 1 GRAM, DAILY
     Route: 065
  2. DAPSONE. [Suspect]
     Active Substance: DAPSONE
     Indication: DERMATITIS
     Dosage: 50 MILLIGRAM, DAILY
     Route: 065
  3. METHYLPREDNISOLONE. [Suspect]
     Active Substance: METHYLPREDNISOLONE
     Indication: DERMATITIS
     Dosage: 40 MG/DAY (0.8 MG/KG/DAY)
     Route: 042
  4. ALENDRONIC ACID [Suspect]
     Active Substance: ALENDRONIC ACID
     Indication: OSTEOPOROSIS
     Dosage: UNK
     Route: 065
  5. HYDROXYCHLOROQUINE [Suspect]
     Active Substance: HYDROXYCHLOROQUINE
     Indication: DERMATITIS
     Dosage: 400 MILLIGRAM, DAILY
     Route: 065

REACTIONS (7)
  - Myalgia [Unknown]
  - Malaise [Unknown]
  - Therapeutic product effect incomplete [Unknown]
  - Arthralgia [Unknown]
  - Fatigue [Unknown]
  - Fracture [Unknown]
  - Subacute cutaneous lupus erythematosus [Recovered/Resolved]
